FAERS Safety Report 9586087 (Version 2)
Quarter: 2013Q4

REPORT INFORMATION
  Report Type: Report from Study
  Country: DE (occurrence: DE)
  Receive Date: 20131003
  Receipt Date: 20131024
  Transmission Date: 20140711
  Serious: Yes (Other)
  Sender: FDA-Public Use
  Company Number: DE-JNJFOC-20130914699

PATIENT
  Sex: 0

DRUGS (1)
  1. REMICADE [Suspect]
     Indication: CROHN^S DISEASE
     Route: 042
     Dates: start: 20130411, end: 20130411

REACTIONS (3)
  - Anal fistula [Recovered/Resolved]
  - Abscess [Recovered/Resolved]
  - Rash [Not Recovered/Not Resolved]
